FAERS Safety Report 15375872 (Version 1)
Quarter: 2018Q3

REPORT INFORMATION
  Report Type: Report from Study
  Country: US (occurrence: US)
  Receive Date: 20180912
  Receipt Date: 20180912
  Transmission Date: 20181010
  Serious: Yes (Other)
  Sender: FDA-Public Use
  Company Number: US-ARIAD-2016US007282

PATIENT
  Sex: Male

DRUGS (1)
  1. PONATINIB [Suspect]
     Active Substance: PONATINIB
     Indication: CHRONIC MYELOID LEUKAEMIA
     Dosage: 45 MG, QD
     Route: 048
     Dates: start: 20161018

REACTIONS (8)
  - Oedema [Unknown]
  - Dyspnoea [Not Recovered/Not Resolved]
  - Cerebrovascular accident [Unknown]
  - Off label use [Unknown]
  - Influenza like illness [Unknown]
  - Asthenia [Unknown]
  - Decreased appetite [Unknown]
  - Myalgia [Not Recovered/Not Resolved]
